FAERS Safety Report 5245944-6 (Version None)
Quarter: 2007Q1

REPORT INFORMATION
  Report Type: 
  Country: None (occurrence: None)
  Receive Date: 20070220
  Receipt Date: 20070201
  Transmission Date: 20070707
  Serious: Yes (Death)
  Sender: FDA-Public Use
  Company Number: 15628

PATIENT
  Age: 83 Year
  Sex: Female

DRUGS (2)
  1. PACLITAXEL [Suspect]
     Indication: ANGIOSARCOMA
     Dosage: 60 MG/M2 ONCE UNK
  2. PACLITAXEL [Suspect]
     Indication: BREAST DISORDER
     Dosage: 60 MG/M2 ONCE UNK

REACTIONS (5)
  - ANAEMIA [None]
  - HYPOVOLAEMIA [None]
  - RENAL FAILURE [None]
  - SHOCK [None]
  - TUMOUR HAEMORRHAGE [None]
